FAERS Safety Report 4451630-2 (Version None)
Quarter: 2004Q3

REPORT INFORMATION
  Report Type: 
  Country: None (occurrence: None)
  Receive Date: 20040915
  Receipt Date: 20040903
  Transmission Date: 20050211
  Serious: Yes (Hospitalization)
  Sender: FDA-Public Use
  Company Number: RS004578-F

PATIENT
  Age: 84 Year
  Sex: Female

DRUGS (6)
  1. RABEPRAZOLE SODIUM [Suspect]
     Dosage: 20 MG, ORAL (2-3 MNTHS BEFORE EVENT)
     Route: 048
  2. ASPIRIN [Concomitant]
  3. ZYLORIC (ALLOPURINOL) [Concomitant]
  4. IMOVANE (ZOPICLONE) [Concomitant]
  5. ARICEPT [Concomitant]
  6. ATHYMIL (MIANSERIN HYDROCHLRIDE) [Concomitant]

REACTIONS (10)
  - DIARRHOEA [None]
  - HYPERKALAEMIA [None]
  - HYPERTHERMIA [None]
  - HYPOCALCAEMIA [None]
  - LEUKOCYTURIA [None]
  - METRORRHAGIA [None]
  - PROTEINURIA [None]
  - RENAL FAILURE ACUTE [None]
  - SKIN DISORDER [None]
  - VITAMIN D DEFICIENCY [None]
